FAERS Safety Report 25803559 (Version 1)
Quarter: 2025Q3

REPORT INFORMATION
  Report Type: Spontaneous
  Country: US (occurrence: None)
  Receive Date: 20250915
  Receipt Date: 20250915
  Transmission Date: 20251020
  Serious: Yes (Hospitalization)
  Sender: FDA-CTU
  Company Number: None

PATIENT
  Age: 84 Year
  Sex: Female

DRUGS (12)
  1. IBSRELA [Suspect]
     Active Substance: TENAPANOR HYDROCHLORIDE
     Indication: Irritable bowel syndrome
     Dosage: 50 MG BID ORAL
     Route: 048
     Dates: start: 202507, end: 202508
  2. BETAMETHASONE [Concomitant]
     Active Substance: BETAMETHASONE
  3. AMOXICILLIN [Concomitant]
     Active Substance: AMOXICILLIN
  4. PREVIDENT [Concomitant]
     Active Substance: SODIUM FLUORIDE
  5. MIRABEGRON [Concomitant]
     Active Substance: MIRABEGRON
  6. QUETIAPINE [Concomitant]
     Active Substance: QUETIAPINE
  7. MONTELUKAST [Concomitant]
     Active Substance: MONTELUKAST
  8. OMEPRAZOLE [Concomitant]
     Active Substance: OMEPRAZOLE
  9. GABAPENTIN [Concomitant]
     Active Substance: GABAPENTIN
  10. ALVESCO [Concomitant]
     Active Substance: CICLESONIDE
  11. FLONASE [Concomitant]
     Active Substance: FLUTICASONE PROPIONATE
  12. ESTRADIOL [Concomitant]
     Active Substance: ESTRADIOL

REACTIONS (3)
  - Dehydration [None]
  - Flatulence [None]
  - Diarrhoea [None]

NARRATIVE: CASE EVENT DATE: 20250801
